FAERS Safety Report 19698628 (Version 1)
Quarter: 2021Q3

REPORT INFORMATION
  Report Type: Spontaneous
  Country: GB (occurrence: GB)
  Receive Date: 20210813
  Receipt Date: 20210813
  Transmission Date: 20211014
  Serious: No
  Sender: FDA-Public Use
  Company Number: GB-ALKEM LABORATORIES LIMITED-GB-ALKEM-2021-02636

PATIENT
  Age: 38 Year
  Sex: Female

DRUGS (5)
  1. MAVENCLAD [Suspect]
     Active Substance: CLADRIBINE
     Dosage: UNK (YEAR TWO)
     Route: 048
     Dates: start: 20210125
  2. PREGABALIN. [Suspect]
     Active Substance: PREGABALIN
     Indication: PRODUCT USED FOR UNKNOWN INDICATION
     Dosage: UNK
     Route: 065
  3. MAVENCLAD [Suspect]
     Active Substance: CLADRIBINE
     Dosage: 20 MILLIGRAM, QD (YEAR ONE MONTH ONE: TWO TABLETS ON DAYS 1 TO 5)
     Route: 048
     Dates: start: 20200127
  4. MAVENCLAD [Suspect]
     Active Substance: CLADRIBINE
     Indication: MULTIPLE SCLEROSIS
     Dosage: 20 MILLIGRAM, QD (YEAR ONE MONTH TWO: TWO TABLETS ON DAYS 1 TO 5)
     Route: 048
  5. SARS?COV?2 VIRUS [Concomitant]
     Active Substance: SARS-COV-2
     Indication: COVID-19 IMMUNISATION
     Dosage: UNK (FIRST DOSE)
     Route: 065
     Dates: start: 20210225

REACTIONS (2)
  - Heavy menstrual bleeding [Unknown]
  - Joint swelling [Unknown]

NARRATIVE: CASE EVENT DATE: 2020
